FAERS Safety Report 23314799 (Version 1)
Quarter: 2023Q4

REPORT INFORMATION
  Report Type: Spontaneous
  Country: US (occurrence: None)
  Receive Date: 20231218
  Receipt Date: 20231218
  Transmission Date: 20240109
  Serious: Yes (Hospitalization)
  Sender: FDA-Public Use
  Company Number: None

PATIENT
  Age: 41 Year
  Sex: Female

DRUGS (2)
  1. OXBRYTA [Suspect]
     Active Substance: VOXELOTOR
     Indication: Sickle cell anaemia with crisis
     Dosage: 1500MG ONCE DAILY ORAL
     Route: 048
     Dates: start: 202004
  2. DEFERASIROX [Concomitant]
     Active Substance: DEFERASIROX

REACTIONS (6)
  - Sickle cell anaemia with crisis [None]
  - Nausea [None]
  - Diarrhoea [None]
  - Abdominal discomfort [None]
  - Swelling face [None]
  - Dizziness [None]

NARRATIVE: CASE EVENT DATE: 20231123
